FAERS Safety Report 21625065 (Version 2)
Quarter: 2024Q2

REPORT INFORMATION
  Report Type: Spontaneous
  Country: US (occurrence: US)
  Receive Date: 20221122
  Receipt Date: 20240606
  Transmission Date: 20240716
  Serious: Yes (Death, Other)
  Sender: FDA-Public Use
  Company Number: US-CELGENE-USA-20220102617

PATIENT
  Age: 72 Year
  Sex: Male
  Weight: 78.8 kg

DRUGS (3)
  1. BREYANZI [Suspect]
     Active Substance: LISOCABTAGENE MARALEUCEL
     Indication: Product used for unknown indication
     Dosage: FREQUENCY TEXT: SINGLE?100 X 10^6 CAR+ T CELLS
     Route: 042
     Dates: start: 20211227, end: 20211227
  2. FLUDARABINE [Concomitant]
     Active Substance: FLUDARABINE PHOSPHATE
     Indication: Plasma cell myeloma
     Route: 042
     Dates: start: 20211222, end: 20211224
  3. CYCLOPHOSPHAMIDE [Concomitant]
     Active Substance: CYCLOPHOSPHAMIDE
     Indication: Plasma cell myeloma
     Route: 042
     Dates: start: 20211222, end: 20211224

REACTIONS (5)
  - Immune effector cell-associated neurotoxicity syndrome [Fatal]
  - Pneumonia aspiration [Unknown]
  - Mediastinal haematoma [Unknown]
  - Shock [Unknown]
  - Cytokine release syndrome [Unknown]

NARRATIVE: CASE EVENT DATE: 20211201
